FAERS Safety Report 10159228 (Version 1)
Quarter: 2014Q2

REPORT INFORMATION
  Report Type: Spontaneous
  Country: US (occurrence: US)
  Receive Date: 20140508
  Receipt Date: 20140508
  Transmission Date: 20141212
  Serious: No
  Sender: FDA-Public Use
  Company Number: US-SHIRE-US201401914

PATIENT
  Age: 16 Year
  Sex: Female

DRUGS (2)
  1. VYVANSE [Suspect]
     Indication: PRODUCT USED FOR UNKNOWN INDICATION
     Dosage: 30 MG, UNKNOWN
     Route: 048
     Dates: start: 201402
  2. VYVANSE [Suspect]
     Dosage: 20 MG, UNKNOWN
     Route: 048
     Dates: end: 201402

REACTIONS (1)
  - Vaginal odour [Unknown]
